FAERS Safety Report 24137204 (Version 1)
Quarter: 2024Q3

REPORT INFORMATION
  Report Type: Spontaneous
  Country: US (occurrence: None)
  Receive Date: 20240724
  Receipt Date: 20240724
  Transmission Date: 20241017
  Serious: Yes (Hospitalization)
  Sender: Public
  Company Number: None

PATIENT
  Age: 75 Year
  Sex: Female
  Weight: 76.9 kg

DRUGS (13)
  1. METHOTREXATE [Suspect]
     Active Substance: METHOTREXATE
     Indication: Rheumatoid arthritis
     Dosage: OTHER FREQUENCY : WEEKLY;?
     Route: 048
  2. ATORVASTATIN [Concomitant]
     Active Substance: ATORVASTATIN
  3. HYDROCHLOROTHIAZIDE\LISINOPRIL [Concomitant]
     Active Substance: HYDROCHLOROTHIAZIDE\LISINOPRIL
  4. MAGNESIUM OXIDE [Concomitant]
     Active Substance: MAGNESIUM OXIDE
  5. MELOXICAM [Concomitant]
     Active Substance: MELOXICAM
  6. OMEPRAZOLE [Concomitant]
     Active Substance: OMEPRAZOLE
  7. PAROXETINE [Concomitant]
     Active Substance: PAROXETINE
  8. CEFTRIAXONE [Concomitant]
     Active Substance: CEFTRIAXONE\CEFTRIAXONE SODIUM
     Dates: start: 20240530, end: 20240530
  9. DOXYCYCLINE [Concomitant]
     Active Substance: DOXYCYCLINE\DOXYCYCLINE HYCLATE
     Dates: start: 20240530
  10. CEPHALEXIN [Concomitant]
     Active Substance: CEPHALEXIN
     Dates: start: 20240530
  11. CEFUROXIME [Concomitant]
     Active Substance: CEFUROXIME
     Dates: start: 20240606
  12. METRONIDAZOLE [Concomitant]
     Active Substance: METRONIDAZOLE
     Dates: start: 20240701
  13. FLUCONAZOLE [Concomitant]
     Active Substance: FLUCONAZOLE
     Dates: start: 20240702

REACTIONS (27)
  - Drug clearance decreased [None]
  - Acute kidney injury [None]
  - Drug interaction [None]
  - Folate deficiency [None]
  - Vitamin B12 deficiency [None]
  - Urinary tract infection [None]
  - Tremor [None]
  - Dyspnoea [None]
  - Asthenia [None]
  - Pulmonary mass [None]
  - White blood cell count decreased [None]
  - Band neutrophil count increased [None]
  - Diarrhoea [None]
  - Dizziness [None]
  - Presyncope [None]
  - Abdominal pain [None]
  - Clostridium difficile infection [None]
  - Blood lactic acid increased [None]
  - Hypertransaminasaemia [None]
  - Alkalosis [None]
  - Dizziness postural [None]
  - Colitis [None]
  - Vitamin D increased [None]
  - Pancytopenia [None]
  - Therapy interrupted [None]
  - Blood folate decreased [None]
  - Toxicity to various agents [None]

NARRATIVE: CASE EVENT DATE: 20240716
